FAERS Safety Report 9200402 (Version 1)
Quarter: 2013Q1

REPORT INFORMATION
  Report Type: Report from Study
  Country: DE (occurrence: DE)
  Receive Date: 20130329
  Receipt Date: 20130329
  Transmission Date: 20140127
  Serious: Yes (Hospitalization, Other)
  Sender: FDA-Public Use
  Company Number: DE-ABBOTT-13P-062-1068076-00

PATIENT
  Age: 71 None
  Sex: Male
  Weight: 73 kg

DRUGS (9)
  1. HUMIRA [Suspect]
     Indication: RHEUMATOID ARTHRITIS
     Route: 058
     Dates: start: 20040309, end: 20121026
  2. PREDNISOLON [Suspect]
     Indication: PRODUCT USED FOR UNKNOWN INDICATION
     Route: 048
     Dates: start: 200301
  3. METHOTREXATE [Suspect]
     Indication: PRODUCT USED FOR UNKNOWN INDICATION
     Route: 048
     Dates: start: 200302
  4. ATACAND 16 [Concomitant]
     Indication: PRODUCT USED FOR UNKNOWN INDICATION
     Dosage: TWO HALF TABLETS PER DAY
     Dates: start: 200506
  5. METAMIZOL [Concomitant]
     Indication: PRODUCT USED FOR UNKNOWN INDICATION
     Dates: start: 200511
  6. TILICOMP [Concomitant]
     Indication: PRODUCT USED FOR UNKNOWN INDICATION
     Dates: start: 200604
  7. VITAMINE E [Concomitant]
     Indication: PRODUCT USED FOR UNKNOWN INDICATION
  8. CALCILAC [Concomitant]
     Indication: PRODUCT USED FOR UNKNOWN INDICATION
  9. TILIDIN [Concomitant]
     Indication: PRODUCT USED FOR UNKNOWN INDICATION
     Dosage: 150/12

REACTIONS (5)
  - Orchitis [Recovered/Resolved]
  - Benign prostatic hyperplasia [Recovered/Resolved]
  - Transurethral prostatectomy [Unknown]
  - Haematuria [Recovered/Resolved]
  - Urinary tract infection [Recovered/Resolved]
